FAERS Safety Report 9057932 (Version 1)
Quarter: 2013Q1

REPORT INFORMATION
  Report Type: Spontaneous
  Country: US (occurrence: None)
  Receive Date: 20130204
  Receipt Date: 20130204
  Transmission Date: 20140127
  Serious: Yes (Hospitalization)
  Sender: FDA-Public Use
  Company Number: None

PATIENT
  Sex: 0

DRUGS (1)
  1. VANCOMYCIN [Suspect]

REACTIONS (4)
  - Renal tubular disorder [None]
  - Dialysis [None]
  - Nephropathy toxic [None]
  - Antibiotic level above therapeutic [None]
